FAERS Safety Report 22655509 (Version 1)
Quarter: 2023Q2

REPORT INFORMATION
  Report Type: Spontaneous
  Country: BG (occurrence: BG)
  Receive Date: 20230629
  Receipt Date: 20230629
  Transmission Date: 20230721
  Serious: Yes (Hospitalization)
  Sender: FDA-Public Use
  Company Number: BG-BoehringerIngelheim-2023-BI-245544

PATIENT
  Age: 60 Year
  Sex: Male

DRUGS (5)
  1. HYDROCHLOROTHIAZIDE\TELMISARTAN [Suspect]
     Active Substance: HYDROCHLOROTHIAZIDE\TELMISARTAN
     Indication: Product used for unknown indication
     Dosage: STRENGTH: 80/12.5 MG, 1 TABLET IN THE MORNING
  2. Rosuvastatin 5 mg  - 1 tablet in the evening [Concomitant]
     Indication: Product used for unknown indication
  3. Metformin 850 mg - 2x1 tablet daily [Concomitant]
     Indication: Product used for unknown indication
  4. Furosemide 40 mg - 1 tablet in the morning on empty stomach [Concomitant]
     Indication: Product used for unknown indication
  5. Bisoprolol 5 mg - 1 tablet daily [Concomitant]
     Indication: Product used for unknown indication

REACTIONS (1)
  - Cardiac failure chronic [Recovered/Resolved]
